FAERS Safety Report 6823044-9 (Version None)
Quarter: 2010Q3

REPORT INFORMATION
  Report Type: 
  Country: None (occurrence: None)
  Receive Date: 20100708
  Receipt Date: 20100628
  Transmission Date: 20110219
  Serious: Yes (Other)
  Sender: FDA-Public Use
  Company Number: B0662447A

PATIENT
  Age: 62 Year
  Sex: Female

DRUGS (3)
  1. REQUIP XL [Suspect]
     Indication: PARKINSON'S DISEASE
     Dosage: 20MG PER DAY
     Route: 065
  2. APOMORPHINE [Concomitant]
  3. SINEMET [Concomitant]

REACTIONS (2)
  - PARKINSON'S DISEASE [None]
  - WITHDRAWAL SYNDROME [None]
